FAERS Safety Report 10248118 (Version 2)
Quarter: 2014Q2

REPORT INFORMATION
  Report Type: Spontaneous
  Country: JP (occurrence: JP)
  Receive Date: 20140619
  Receipt Date: 20140619
  Transmission Date: 20141212
  Serious: Yes (Hospitalization)
  Sender: FDA-Public Use
  Company Number: JP-TAKEDA-2014TJP005995

PATIENT
  Age: 74 Year
  Sex: Female
  Weight: 61 kg

DRUGS (14)
  1. TAKEPRON OD TABLETS 15 [Suspect]
     Indication: GASTRIC ULCER
     Dosage: 15 MG, QD
     Route: 048
     Dates: start: 20131216, end: 20140312
  2. BLOPRESS [Concomitant]
     Indication: HYPERTENSION
     Dosage: 8 MG, UNK
     Route: 048
     Dates: start: 20050917
  3. PLETAAL [Concomitant]
     Indication: PERIPHERAL ARTERIAL OCCLUSIVE DISEASE
     Dosage: 100 MG, UNK
     Route: 048
     Dates: start: 20050917
  4. LIPITOR [Concomitant]
     Indication: DYSLIPIDAEMIA
     Dosage: 10 MG, UNK
     Route: 048
     Dates: start: 20050917
  5. LIPITOR [Concomitant]
     Dosage: 5 MG, UNK
     Route: 048
  6. CEPHADOL [Concomitant]
     Indication: DIZZINESS
     Dosage: 25 MG, UNK
     Route: 048
     Dates: start: 20050917
  7. SIGMART [Concomitant]
     Indication: ANGINA PECTORIS
     Dosage: 5 MG, UNK
     Route: 048
     Dates: start: 20061113
  8. GLACTIV [Concomitant]
     Indication: DIABETES MELLITUS
     Dosage: 50 MG, UNK
     Route: 048
     Dates: start: 20111206
  9. GLACTIV [Concomitant]
     Dosage: 100 MG, UNK
     Route: 048
  10. FEBURIC [Concomitant]
     Indication: HYPERURICAEMIA
     Dosage: 10 MG, UNK
     Route: 048
     Dates: start: 20111206
  11. FEBURIC [Concomitant]
     Dosage: 20 MG, UNK
     Route: 048
  12. SELBEX [Concomitant]
     Indication: GASTRITIS
     Dosage: 50 MG, UNK
     Route: 048
     Dates: start: 20050917
  13. DEPAS [Concomitant]
     Indication: ANXIETY DISORDER
     Dosage: 0.5 MG, UNK
     Route: 048
     Dates: start: 20050917
  14. METGLUCO [Concomitant]
     Indication: DIABETES MELLITUS
     Dosage: 250 MG, UNK
     Route: 048
     Dates: start: 20121115, end: 20140313

REACTIONS (1)
  - Colitis microscopic [Recovered/Resolved]
